FAERS Safety Report 19121019 (Version 1)
Quarter: 2021Q2

REPORT INFORMATION
  Report Type: Spontaneous
  Country: GB (occurrence: GB)
  Receive Date: 20210412
  Receipt Date: 20210412
  Transmission Date: 20210717
  Serious: Yes (Other)
  Sender: FDA-Public Use
  Company Number: GB-NOVOPROD-800523

PATIENT
  Age: 62 Year
  Sex: Female
  Weight: 97 kg

DRUGS (3)
  1. HYDROXYCHLOROQUINE SULFATE. [Concomitant]
     Active Substance: HYDROXYCHLOROQUINE SULFATE
     Indication: ILL-DEFINED DISORDER
     Dosage: ONE TABLET DAILY
     Route: 065
     Dates: start: 20210129
  2. METHOTREXATE. [Concomitant]
     Active Substance: METHOTREXATE
     Indication: ILL-DEFINED DISORDER
     Dosage: TWO TABLET DAILY (20MG DOSE)
     Route: 065
     Dates: start: 20210129
  3. OZEMPIC [Suspect]
     Active Substance: SEMAGLUTIDE
     Indication: ILL-DEFINED DISORDER
     Dosage: UNK
     Route: 058
     Dates: start: 20190801, end: 20210330

REACTIONS (2)
  - Injection site vesicles [Not Recovered/Not Resolved]
  - Off label use [Unknown]

NARRATIVE: CASE EVENT DATE: 20210324
